APPROVED DRUG PRODUCT: SOLODYN
Active Ingredient: MINOCYCLINE HYDROCHLORIDE
Strength: EQ 90MG BASE **Federal Register determination that product was not discontinued or withdrawn for safety or effectiveness reasons**
Dosage Form/Route: TABLET, EXTENDED RELEASE;ORAL
Application: N050808 | Product #002
Applicant: BAUSCH HEALTH US LLC
Approved: May 8, 2006 | RLD: Yes | RS: No | Type: DISCN

PATENTS:
Patent 7544373 | Expires: Apr 2, 2027
Patent 7541347 | Expires: Apr 2, 2027
Patent 7919483 | Expires: Mar 7, 2027